FAERS Safety Report 24617356 (Version 1)
Quarter: 2024Q4

REPORT INFORMATION
  Report Type: Spontaneous
  Country: GB (occurrence: GB)
  Receive Date: 20241114
  Receipt Date: 20241114
  Transmission Date: 20250115
  Serious: Yes (Other)
  Sender: TEVA
  Company Number: None

PATIENT
  Age: 27 Year
  Sex: Female

DRUGS (5)
  1. AMITRIPTYLINE [Suspect]
     Active Substance: AMITRIPTYLINE
     Indication: Migraine
     Dosage: AT NIGHT
     Route: 065
     Dates: start: 20220401, end: 20241106
  2. NAPROXEN [Suspect]
     Active Substance: NAPROXEN
     Indication: Migraine
     Dosage: 1 TO 2 TABLET WHEN PAIN STARTS
     Route: 065
     Dates: start: 20240404
  3. ZENTIVA [Concomitant]
     Indication: Faecal vomiting
     Dosage: PHARMA UK OMEPRAZOLE GASTRO RESISTANT
     Dates: start: 20240614
  4. NAPROXEN [Concomitant]
     Active Substance: NAPROXEN
     Indication: Headache
     Dates: start: 20240405
  5. SUMATRIPTAN [Concomitant]
     Active Substance: SUMATRIPTAN
     Indication: Migraine
     Dates: start: 20230401

REACTIONS (5)
  - Haematemesis [Recovering/Resolving]
  - Gastrooesophageal reflux disease [Not Recovered/Not Resolved]
  - Weight increased [Not Recovered/Not Resolved]
  - Swelling face [Not Recovered/Not Resolved]
  - Abdominal distension [Not Recovered/Not Resolved]

NARRATIVE: CASE EVENT DATE: 20230401
